FAERS Safety Report 8447963-5 (Version None)
Quarter: 2012Q2

REPORT INFORMATION
  Report Type: 
  Country: None (occurrence: None)
  Receive Date: 20120619
  Receipt Date: 20120608
  Transmission Date: 20120825
  Serious: No
  Sender: FDA-Public Use
  Company Number: US-B.I. PHARMACEUTICALS,INC./RIDGEFIELD-2012-BP-13369BP

PATIENT
  Sex: Female

DRUGS (5)
  1. OXYCODONE HCL [Suspect]
     Indication: RIB FRACTURE
     Route: 048
     Dates: start: 20120516, end: 20120607
  2. COMBIVENT [Suspect]
     Indication: RIB FRACTURE
     Dosage: 4 PUF
     Route: 055
     Dates: start: 20120518, end: 20120527
  3. COMBIVENT [Suspect]
     Indication: FALL
  4. OXYCODONE HCL [Suspect]
     Indication: FALL
  5. SYNTHROID [Concomitant]
     Indication: HYPOTHYROIDISM
     Route: 048

REACTIONS (1)
  - OEDEMA PERIPHERAL [None]
